APPROVED DRUG PRODUCT: NAPROXEN SODIUM
Active Ingredient: NAPROXEN SODIUM
Strength: 220MG
Dosage Form/Route: TABLET;ORAL
Application: A204872 | Product #001
Applicant: LNK INTERNATIONAL INC
Approved: Jan 23, 2017 | RLD: No | RS: No | Type: OTC